FAERS Safety Report 25610404 (Version 1)
Quarter: 2025Q3

REPORT INFORMATION
  Report Type: Spontaneous
  Country: US (occurrence: US)
  Receive Date: 20250728
  Receipt Date: 20250728
  Transmission Date: 20251020
  Serious: Yes (Hospitalization)
  Sender: ASTELLAS
  Company Number: US-ASTELLAS-2025-AER-039224

PATIENT
  Age: 67 Year
  Sex: Female

DRUGS (2)
  1. REGADENOSON [Suspect]
     Active Substance: REGADENOSON
     Indication: Scan myocardial perfusion
     Route: 065
  2. hydrocodone^-acetaminophen [Concomitant]
     Indication: Pain management
     Route: 065

REACTIONS (1)
  - Hemiplegic migraine [Recovering/Resolving]
